FAERS Safety Report 6085289-8 (Version None)
Quarter: 2009Q1

REPORT INFORMATION
  Report Type: 
  Country: None (occurrence: None)
  Receive Date: 20090220
  Receipt Date: 20090218
  Transmission Date: 20090719
  Serious: Yes (Life-Threatening, Other)
  Sender: FDA-Public Use
  Company Number: JP-WYE-H08136009

PATIENT
  Sex: Female
  Weight: 45 kg

DRUGS (11)
  1. ZOSYN [Suspect]
     Indication: PNEUMONIA
     Dosage: 4.5 G
     Route: 041
     Dates: start: 20090127, end: 20090127
  2. CHLORPROMAZINE [Concomitant]
     Indication: INSOMNIA
     Dosage: 1TAB/DAY
     Route: 048
  3. PROMETHAZINE [Concomitant]
     Indication: INSOMNIA
     Dosage: 1TAB/DAY
     Route: 048
  4. DIOVAN [Concomitant]
     Indication: HYPERTENSION
     Dosage: 80 MG/DAY
     Route: 048
  5. ALOSENN [Concomitant]
     Indication: CONSTIPATION
     Dosage: 0.5 G/DAY
     Route: 048
  6. OMEPRAL [Concomitant]
     Indication: REFLUX OESOPHAGITIS
     Dosage: 20 MG/DAY
     Route: 048
  7. SELBEX [Concomitant]
     Indication: GASTRITIS
     Dosage: 150 MG/DAY
     Route: 048
  8. LORCAM [Concomitant]
     Indication: SPINAL COMPRESSION FRACTURE
     Dosage: 12 MG/DAY
     Route: 048
  9. OPALMON [Concomitant]
     Indication: ARTERIOSCLEROSIS OBLITERANS
     Dosage: 15 MICROGRAM/DAY
     Route: 048
  10. PHENOBARBITAL TAB [Concomitant]
     Indication: EPILEPSY
     Dosage: 60 MG/DAY
     Route: 048
  11. CONIEL [Concomitant]
     Indication: HYPERTENSION
     Dosage: 2 MG/DAY
     Route: 048

REACTIONS (1)
  - ANAPHYLACTIC SHOCK [None]
